FAERS Safety Report 4408647-3 (Version None)
Quarter: 2004Q3

REPORT INFORMATION
  Report Type: 
  Country: None (occurrence: None)
  Receive Date: 20040723
  Receipt Date: 20040709
  Transmission Date: 20050211
  Serious: Yes (Other)
  Sender: FDA-Public Use
  Company Number: 2004-0007246

PATIENT
  Age: 0 Hour
  Sex: Male

DRUGS (7)
  1. VIREAD [Suspect]
     Indication: HIV INFECTION
     Dosage: TRANSPLACENTAL
     Route: 064
  2. ZIAGEN [Concomitant]
  3. NORVIR [Concomitant]
  4. AGENERASE [Concomitant]
  5. BACTRIM [Concomitant]
  6. TARDIFERON (FERROUS SULFATE) [Concomitant]
  7. DAFLON (DIOSMIN) [Concomitant]

REACTIONS (5)
  - CAESAREAN SECTION [None]
  - DRUG EXPOSURE DURING PREGNANCY [None]
  - HYPERTONIA NEONATAL [None]
  - HYPOCALCAEMIA [None]
  - NEONATAL DISORDER [None]
